FAERS Safety Report 23928756 (Version 5)
Quarter: 2025Q3

REPORT INFORMATION
  Report Type: Spontaneous
  Country: US (occurrence: US)
  Receive Date: 20240531
  Receipt Date: 20250708
  Transmission Date: 20251021
  Serious: Yes (Disabling, Other)
  Sender: RADIUS PHARM
  Company Number: US-RADIUS HEALTH INC.-2024US000004

PATIENT
  Sex: Female

DRUGS (1)
  1. TYMLOS [Suspect]
     Active Substance: ABALOPARATIDE
     Indication: Osteoporosis
     Dosage: 4 CLICKS OF TYMLOS A DAY/HALF DOSE
     Route: 058
     Dates: start: 2022

REACTIONS (18)
  - Foot deformity [Unknown]
  - Multiple fractures [Unknown]
  - Bone neoplasm [Unknown]
  - Bone density decreased [Unknown]
  - Condition aggravated [Unknown]
  - Bone disorder [Unknown]
  - Lymphoedema [Unknown]
  - Gait disturbance [Unknown]
  - Bone atrophy [Unknown]
  - Back pain [Unknown]
  - Illness [Recovering/Resolving]
  - Brain fog [Recovering/Resolving]
  - Injection site discolouration [Unknown]
  - Orthostatic hypotension [Unknown]
  - Heart rate increased [Unknown]
  - Drug ineffective [Unknown]
  - Intentional product misuse [Unknown]
  - Product storage error [Unknown]

NARRATIVE: CASE EVENT DATE: 20250101
